FAERS Safety Report 7623281 (Version 6)
Quarter: 2014Q1

REPORT INFORMATION
  Report Type: Report from Study
  Country: KR (occurrence: KR)
  Receive Date: 20101011
  Receipt Date: 20140219
  Transmission Date: 20141002
  Serious: Yes (Death, Hospitalization, Other)
  Sender: FDA-Public Use
  Company Number: KR-JNJFOC-20100908574

PATIENT
  Age: 39 Year
  Sex: Male
  Weight: 50 kg

DRUGS (6)
  1. REMICADE [Suspect]
     Indication: CROHN^S DISEASE
     Route: 042
     Dates: start: 20100420
  2. REMICADE [Suspect]
     Indication: CROHN^S DISEASE
     Route: 042
     Dates: start: 20100406
  3. PENTASA S.R. [Concomitant]
     Indication: CROHN^S DISEASE
     Route: 048
     Dates: start: 20060615, end: 20100726
  4. AZATHIOPRINE [Concomitant]
     Indication: CROHN^S DISEASE
     Route: 048
     Dates: start: 20090616, end: 20100726
  5. ARESTAL [Concomitant]
     Indication: DIARRHOEA
     Dosage: DOSE: 2 T
     Route: 048
     Dates: start: 20100420, end: 20100726
  6. CITOPCIN [Concomitant]
     Indication: CROHN^S DISEASE
     Route: 048
     Dates: start: 20100406, end: 20100420

REACTIONS (7)
  - Disseminated intravascular coagulation [Fatal]
  - Intra-abdominal haemorrhage [Fatal]
  - Neutropenic sepsis [Fatal]
  - Pancytopenia [Fatal]
  - Pneumonia [Fatal]
  - Haematoma [Fatal]
  - Tuberculosis gastrointestinal [Fatal]
